FAERS Safety Report 16324784 (Version 1)
Quarter: 2019Q2

REPORT INFORMATION
  Report Type: Spontaneous
  Country: US (occurrence: US)
  Receive Date: 20190517
  Receipt Date: 20190517
  Transmission Date: 20190711
  Serious: Yes (Hospitalization, Other)
  Sender: FDA-Public Use
  Company Number: PHEH2019US020791

PATIENT
  Sex: Male

DRUGS (1)
  1. TIMOLOL. [Suspect]
     Active Substance: TIMOLOL
     Indication: PRODUCT USED FOR UNKNOWN INDICATION
     Dosage: 1 GTT, BID (MORNING AND NIGHT)
     Route: 065

REACTIONS (4)
  - Retinal tear [Unknown]
  - Pneumonia [Unknown]
  - Atrial fibrillation [Unknown]
  - Glaucoma [Unknown]
